FAERS Safety Report 12131496 (Version 1)
Quarter: 2016Q1

REPORT INFORMATION
  Report Type: Spontaneous
  Country: FR (occurrence: FR)
  Receive Date: 20160301
  Receipt Date: 20160301
  Transmission Date: 20160526
  Serious: Yes (Hospitalization)
  Sender: FDA-Public Use
  Company Number: FR-PFIZER INC-2016113377

PATIENT
  Age: 82 Year
  Sex: Male

DRUGS (9)
  1. TENORMIN [Concomitant]
     Active Substance: ATENOLOL
     Dosage: 50 MG, UNK
  2. TAHOR [Concomitant]
     Active Substance: ATORVASTATIN CALCIUM
  3. COUMADINE [Concomitant]
     Active Substance: WARFARIN SODIUM
     Dosage: 2 MG, UNK
  4. LASILIX FAIBLE [Concomitant]
     Active Substance: FUROSEMIDE
     Dosage: 20 MG, UNK
  5. LYRICA [Suspect]
     Active Substance: PREGABALIN
     Indication: NEURALGIA
     Dosage: 125 MG, DAILY (25MG X 2 IN THE MORNING AND 75 MG IN THE EVENING)
     Route: 048
     Dates: start: 20151213, end: 20151218
  6. COVERSYL /00790703/ [Concomitant]
     Active Substance: PERINDOPRIL
     Dosage: 2.5 MG, UNK
  7. KARDEGIC [Concomitant]
     Active Substance: ASPIRIN LYSINE
     Dosage: 75 MG, UNK
  8. STAGID [Concomitant]
     Active Substance: METFORMIN PAMOATE
     Dosage: 700 MG, UNK
  9. AUGMENTIN [Suspect]
     Active Substance: AMOXICILLIN\CLAVULANATE POTASSIUM
     Indication: ERYSIPELAS
     Dosage: 1 G, 3X/DAY
     Route: 048
     Dates: start: 20151209, end: 20151218

REACTIONS (3)
  - Skin plaque [Recovered/Resolved]
  - Pruritus [Recovered/Resolved]
  - Tongue oedema [Recovered/Resolved]

NARRATIVE: CASE EVENT DATE: 20151216
